FAERS Safety Report 12119009 (Version 2)
Quarter: 2016Q3

REPORT INFORMATION
  Report Type: Spontaneous
  Country: US (occurrence: US)
  Receive Date: 20160226
  Receipt Date: 20160718
  Transmission Date: 20161109
  Serious: Yes (Hospitalization)
  Sender: FDA-Public Use
  Company Number: US-BEH-2016059152

PATIENT
  Age: 65 Year
  Sex: Female
  Weight: 77.11 kg

DRUGS (25)
  1. TOPAMAX [Concomitant]
     Active Substance: TOPIRAMATE
  2. CARAFATE [Concomitant]
     Active Substance: SUCRALFATE
  3. ZOMIG [Concomitant]
     Active Substance: ZOLMITRIPTAN
  4. DIPHENHYDRAMINE. [Concomitant]
     Active Substance: DIPHENHYDRAMINE
  5. SODIUM CHLORIDE. [Concomitant]
     Active Substance: SODIUM CHLORIDE
  6. BENAZEPRIL [Concomitant]
     Active Substance: BENAZEPRIL HYDROCHLORIDE
  7. SPIRIVA [Concomitant]
     Active Substance: TIOTROPIUM BROMIDE MONOHYDRATE
  8. ZEMAIRA [Suspect]
     Active Substance: .ALPHA.1-PROTEINASE INHIBITOR HUMAN
     Indication: ALPHA-1 ANTI-TRYPSIN DEFICIENCY
     Route: 042
     Dates: start: 20151203
  9. METHYLPREDNISOLONE. [Concomitant]
     Active Substance: METHYLPREDNISOLONE
  10. LASIX [Concomitant]
     Active Substance: FUROSEMIDE
  11. EPIPEN [Concomitant]
     Active Substance: EPINEPHRINE
  12. IMITREX [Concomitant]
     Active Substance: SUMATRIPTAN SUCCINATE
  13. SINGULAIR [Concomitant]
     Active Substance: MONTELUKAST SODIUM
  14. VENTOLIN [Concomitant]
     Active Substance: ALBUTEROL SULFATE
  15. SYMBICORT [Concomitant]
     Active Substance: BUDESONIDE\FORMOTEROL FUMARATE DIHYDRATE
  16. PRILOSEC [Concomitant]
     Active Substance: OMEPRAZOLE MAGNESIUM
  17. GABAPENTIN. [Concomitant]
     Active Substance: GABAPENTIN
  18. CALCIUM [Concomitant]
     Active Substance: CALCIUM
  19. HYDROCODONE [Concomitant]
     Active Substance: HYDROCODONE
  20. CHLORDIAZEPOXIDE. [Concomitant]
     Active Substance: CHLORDIAZEPOXIDE
  21. LEVAQUIN [Concomitant]
     Active Substance: LEVOFLOXACIN
  22. ETODOLAC. [Concomitant]
     Active Substance: ETODOLAC
  23. MUCINEX [Concomitant]
     Active Substance: GUAIFENESIN
  24. ZOFRAN [Concomitant]
     Active Substance: ONDANSETRON HYDROCHLORIDE
  25. DOXYCYCLINE. [Concomitant]
     Active Substance: DOXYCYCLINE

REACTIONS (2)
  - Gastritis erosive [Recovered/Resolved]
  - Gastrooesophageal reflux disease [Recovered/Resolved]

NARRATIVE: CASE EVENT DATE: 20160203
